FAERS Safety Report 7009393-2 (Version None)
Quarter: 2010Q3

REPORT INFORMATION
  Report Type: 
  Country: None (occurrence: None)
  Receive Date: 20100921
  Receipt Date: 20100909
  Transmission Date: 20110219
  Serious: Yes (Life-Threatening, Hospitalization, Other)
  Sender: FDA-Public Use
  Company Number: 1000016086

PATIENT
  Age: 39 Year
  Sex: Female
  Weight: 75 kg

DRUGS (5)
  1. ESCITALOPRAM OXALATE [Suspect]
     Dosage: ORAL
     Route: 048
     Dates: start: 20100829, end: 20100829
  2. TRIMIPRAMINE MALEATE [Suspect]
     Dosage: (5000 MG, ONCE), ORAL
     Route: 048
     Dates: start: 20100829, end: 20100829
  3. ZOLPIDEM [Suspect]
     Dosage: (200 MG, ONCE), ORAL
     Route: 048
     Dates: start: 20100829, end: 20100829
  4. COCAINE (COCAINE) [Suspect]
     Dosage: NASAL
     Route: 045
     Dates: start: 20100829, end: 20100829
  5. ALCOHOL (ETHANOL) [Suspect]
     Dosage: ORAL
     Route: 048
     Dates: start: 20100829, end: 20100829

REACTIONS (5)
  - ASPIRATION [None]
  - COMA [None]
  - MULTIPLE DRUG OVERDOSE INTENTIONAL [None]
  - SUICIDE ATTEMPT [None]
  - VOMITING [None]
